FAERS Safety Report 14310584 (Version 3)
Quarter: 2019Q2

REPORT INFORMATION
  Report Type: Spontaneous
  Country: NL (occurrence: NL)
  Receive Date: 20171220
  Receipt Date: 20190404
  Transmission Date: 20190711
  Serious: Yes (Other)
  Sender: FDA-Public Use
  Company Number: NL-MYLANLABS-2017M1079644

PATIENT
  Age: 40 Year
  Sex: Male

DRUGS (1)
  1. PAROXETINE. [Suspect]
     Active Substance: PAROXETINE
     Indication: DEPRESSION
     Dosage: 20 MG, QD
     Route: 065
     Dates: start: 200805

REACTIONS (8)
  - Erectile dysfunction [Recovering/Resolving]
  - Sensory loss [Recovered/Resolved]
  - Ejaculation failure [Recovering/Resolving]
  - Anosmia [Recovered/Resolved]
  - Hypoaesthesia [Recovering/Resolving]
  - Genital hypoaesthesia [Recovering/Resolving]
  - Sexual dysfunction [Recovering/Resolving]
  - Ageusia [Recovered/Resolved]

NARRATIVE: CASE EVENT DATE: 200805
